FAERS Safety Report 9118479 (Version 1)
Quarter: 2013Q1

REPORT INFORMATION
  Report Type: Spontaneous
  Country: US (occurrence: US)
  Receive Date: 20130219
  Receipt Date: 20130219
  Transmission Date: 20140127
  Serious: No
  Sender: FDA-Public Use
  Company Number: US-BRISTOL-MYERS SQUIBB COMPANY-17164765

PATIENT
  Age: 82 Year
  Sex: Male

DRUGS (1)
  1. ORENCIA FOR INJ [Suspect]
     Dosage: LAST INF: 16NOV12?DURATN OF THERAPY: 3MNTHS
     Route: 042

REACTIONS (2)
  - Fatigue [Unknown]
  - Contusion [Unknown]
